FAERS Safety Report 21271729 (Version 1)
Quarter: 2022Q3

REPORT INFORMATION
  Report Type: Spontaneous
  Country: None (occurrence: US)
  Receive Date: 20220830
  Receipt Date: 20220830
  Transmission Date: 20221027
  Serious: No
  Sender: FDA-Public Use
  Company Number: US-LNK INTERNATIONAL, INC.-2132393

PATIENT
  Age: 24 Month
  Sex: Male

DRUGS (1)
  1. IBUPROFEN [Suspect]
     Active Substance: IBUPROFEN
     Indication: Accidental exposure to product by child

REACTIONS (1)
  - Accidental exposure to product by child [None]
